FAERS Safety Report 9517161 (Version 1)
Quarter: 2013Q3

REPORT INFORMATION
  Report Type: Spontaneous
  Country: US (occurrence: US)
  Receive Date: 20130911
  Receipt Date: 20130911
  Transmission Date: 20140515
  Serious: No
  Sender: FDA-Public Use
  Company Number: US-PFIZER INC-2013257571

PATIENT
  Age: 42 Year
  Sex: Male

DRUGS (14)
  1. MOTRIN IB [Suspect]
     Dosage: UNK
  2. LISINOPRIL [Concomitant]
     Indication: HYPERTENSION
     Dosage: 10 MG, UNK
  3. ZANTAC [Concomitant]
     Indication: GASTROOESOPHAGEAL REFLUX DISEASE
     Dosage: 30 MG, UNK
  4. PROZAC [Concomitant]
     Indication: DEPRESSION
     Dosage: 40 MG, UNK
  5. PROTONIX [Concomitant]
     Indication: BARRETT^S OESOPHAGUS
     Dosage: 40 MG, UNK
  6. LYRICA [Concomitant]
     Indication: PAIN
     Dosage: UNK
  7. IMITREX [Concomitant]
     Indication: HEADACHE
     Dosage: UNK
  8. MELATONIN [Concomitant]
     Indication: SLEEP DISORDER
     Dosage: UNK
  9. ZOCOR [Concomitant]
     Indication: BLOOD CHOLESTEROL INCREASED
     Dosage: UNK
  10. SIMVASTATIN [Concomitant]
     Indication: BLOOD CHOLESTEROL INCREASED
     Dosage: 20 MG, UNK
  11. PRO-AIR [Concomitant]
     Indication: POST PROCEDURAL COMPLICATION
     Dosage: UNK
  12. DEPAKOTE [Concomitant]
     Indication: CONVULSION
     Dosage: UNK
  13. COLLAGENASE SANTYL [Concomitant]
     Indication: BACK PAIN
     Dosage: UNK
  14. FIORICET [Concomitant]
     Indication: HEADACHE
     Dosage: UNK

REACTIONS (3)
  - Rash [Unknown]
  - Urticaria [Unknown]
  - Hypersensitivity [Unknown]
